FAERS Safety Report 4891264-9 (Version None)
Quarter: 2006Q1

REPORT INFORMATION
  Report Type: 
  Country: None (occurrence: None)
  Receive Date: 20060125
  Receipt Date: 20051110
  Transmission Date: 20060701
  Serious: Yes (Hospitalization)
  Sender: FDA-Public Use
  Company Number: US-ROCHE-424565

PATIENT
  Age: 68 Year
  Sex: Female
  Weight: 88.7 kg

DRUGS (32)
  1. MYCOPHENOLATE MOFETIL [Suspect]
     Route: 048
     Dates: start: 20040813, end: 20050209
  2. MYCOPHENOLATE MOFETIL [Suspect]
     Route: 048
     Dates: start: 20050209, end: 20050711
  3. MYCOPHENOLATE MOFETIL [Suspect]
     Route: 048
     Dates: start: 20050711, end: 20050711
  4. MYCOPHENOLATE MOFETIL [Suspect]
     Route: 048
     Dates: start: 20050712, end: 20050712
  5. MYCOPHENOLATE MOFETIL [Suspect]
     Route: 048
     Dates: start: 20050713, end: 20050717
  6. MYCOPHENOLATE MOFETIL [Suspect]
     Route: 048
  7. TACROLIMUS [Suspect]
     Route: 048
     Dates: start: 20040815, end: 20050425
  8. TACROLIMUS [Suspect]
     Route: 048
     Dates: start: 20050425, end: 20050711
  9. TACROLIMUS [Suspect]
     Route: 048
     Dates: start: 20050711, end: 20050711
  10. TACROLIMUS [Suspect]
     Route: 048
     Dates: start: 20050712, end: 20050712
  11. TACROLIMUS [Suspect]
     Route: 048
     Dates: start: 20050714
  12. TACROLIMUS [Suspect]
     Route: 048
  13. MEDROL [Suspect]
     Route: 048
     Dates: start: 20040813, end: 20050628
  14. MEDROL [Suspect]
     Route: 048
     Dates: start: 20050628, end: 20050701
  15. MEDROL [Suspect]
     Route: 048
     Dates: start: 20050701
  16. NEPHROCAPS [Concomitant]
     Route: 048
     Dates: start: 20050624
  17. SERTRALINE [Concomitant]
     Dates: start: 20050624, end: 20050710
  18. ASPIRIN [Concomitant]
     Route: 048
     Dates: start: 20040816
  19. ZOCOR [Concomitant]
     Route: 048
     Dates: start: 20040816
  20. ARANESP [Concomitant]
     Dosage: DOSE REPORTED AS VARIABLE. 62 WEEKS TREATMENT.
     Dates: start: 20050404
  21. AVANDIA [Concomitant]
     Dates: start: 20050708, end: 20050710
  22. XANAX [Concomitant]
     Dates: start: 20041228, end: 20050710
  23. NOVOLOG [Concomitant]
     Dosage: TOTAL DAILY DOSE REPORTED AS 55.
     Dates: start: 20040902, end: 20050710
  24. LANTUS [Concomitant]
     Dates: start: 20050708
  25. LISINOPRIL [Concomitant]
     Dates: start: 20050303, end: 20050713
  26. FUROSEMIDE [Concomitant]
     Dates: start: 20040830, end: 20050710
  27. ZETIA [Concomitant]
     Dates: start: 20050208, end: 20050710
  28. BACTRIM DS [Concomitant]
     Dates: start: 20040830, end: 20050713
  29. DARVON [Concomitant]
     Dosage: AS REQUIRED.
     Dates: start: 20040817, end: 20050710
  30. PROTONIX [Concomitant]
     Dates: start: 20050624, end: 20050711
  31. IMDUR [Concomitant]
     Route: 048
     Dates: start: 20040816
  32. METOPROLOL [Concomitant]
     Route: 048
     Dates: start: 20040817

REACTIONS (2)
  - ANAEMIA [None]
  - ASTHENIA [None]
